FAERS Safety Report 23945790 (Version 1)
Quarter: 2024Q2

REPORT INFORMATION
  Report Type: Report from Study
  Country: US (occurrence: None)
  Receive Date: 20240606
  Receipt Date: 20240606
  Transmission Date: 20240716
  Serious: Yes (Hospitalization, Other)
  Sender: FDA-Public Use
  Company Number: 2024A126580

PATIENT
  Age: 67 Year
  Sex: Female

DRUGS (38)
  1. LYNPARZA [Suspect]
     Active Substance: OLAPARIB
     Indication: Ovarian cancer
     Route: 048
     Dates: start: 20220105
  2. PROBIOTICS NOS [Concomitant]
     Active Substance: PROBIOTICS NOS
  3. FLUOROURACIL [Concomitant]
     Active Substance: FLUOROURACIL
  4. XANAX [Concomitant]
     Active Substance: ALPRAZOLAM
  5. IBUPROFEN [Concomitant]
     Active Substance: IBUPROFEN
  6. FLONASE ALLERGY RELIEF [Concomitant]
     Active Substance: FLUTICASONE PROPIONATE
  7. CIMETIDINE [Concomitant]
     Active Substance: CIMETIDINE
  8. VITAMIN B COMPLEX [Concomitant]
     Active Substance: CYANOCOBALAMIN\DEXPANTHENOL\NIACINAMIDE\PYRIDOXINE HYDROCHLORIDE\RIBOFLAVIN 5^-PHOSPHATE SODIUM\THIA
  9. CETIRIZINE HCL [Concomitant]
     Active Substance: CETIRIZINE HYDROCHLORIDE
  10. BISACODYL [Concomitant]
     Active Substance: BISACODYL
  11. ACETAMINOPHEN [Concomitant]
     Active Substance: ACETAMINOPHEN
  12. HERBALS\TURMERIC [Concomitant]
     Active Substance: HERBALS\TURMERIC
  13. BIOTIN [Concomitant]
     Active Substance: BIOTIN
  14. POTASSIUM GLUCONATE [Concomitant]
     Active Substance: POTASSIUM GLUCONATE
  15. MAGNESIUM [Concomitant]
     Active Substance: MAGNESIUM
  16. CO Q-10-VITAMIN E-FISH OIL [Concomitant]
  17. VITAMIN D3 [Concomitant]
     Active Substance: CHOLECALCIFEROL
  18. VITAMIN C [Concomitant]
     Active Substance: ASCORBIC ACID
  19. ZINC [Concomitant]
     Active Substance: PYRITHIONE ZINC\ZINC\ZINC CHLORIDE
  20. ASPIRIN [Concomitant]
     Active Substance: ASPIRIN
  21. GINGER [Concomitant]
     Active Substance: GINGER
  22. FEXOFENADINE HYDROCHLORIDE [Concomitant]
     Active Substance: FEXOFENADINE HYDROCHLORIDE
  23. CALCIUM PHOSPHATE [Concomitant]
     Active Substance: CALCIUM PHOSPHATE
  24. CALCIUM [Concomitant]
     Active Substance: CALCIUM
  25. BETAMETHASONE DIPROP [Concomitant]
  26. VITAMINS [Concomitant]
     Active Substance: VITAMINS
  27. DIPHENHYDRAMINE HYDROCHLORIDE [Concomitant]
     Active Substance: DIPHENHYDRAMINE HYDROCHLORIDE
  28. ONDANSETRON HYDROCHLORIDE [Concomitant]
     Active Substance: ONDANSETRON HYDROCHLORIDE
  29. GERI-KOT [Concomitant]
     Active Substance: SENNOSIDES
  30. MAGNESIUM [Concomitant]
     Active Substance: MAGNESIUM
  31. CLOTRIMAZOLE [Concomitant]
     Active Substance: CLOTRIMAZOLE
  32. IRON/ASCORBIC ACID [Concomitant]
  33. OMEPRAZOLE [Concomitant]
     Active Substance: DONEPEZIL HYDROCHLORIDE\OMEPRAZOLE\OMEPRAZOLE MAGNESIUM
  34. NAPROXEN [Concomitant]
     Active Substance: NAPROXEN
  35. ACYCLOVIR [Concomitant]
     Active Substance: ACYCLOVIR
  36. FAMOTIDINE [Concomitant]
     Active Substance: FAMOTIDINE
  37. LORATADINE [Concomitant]
     Active Substance: LORATADINE
  38. ST. JOHN^S WORT [Concomitant]
     Active Substance: ST. JOHN^S WORT

REACTIONS (5)
  - Neutropenic colitis [Recovering/Resolving]
  - Full blood count decreased [Unknown]
  - Hypotension [Unknown]
  - Pain [Unknown]
  - Oxygen saturation decreased [Unknown]

NARRATIVE: CASE EVENT DATE: 20240426
